FAERS Safety Report 11683022 (Version 1)
Quarter: 2015Q4

REPORT INFORMATION
  Report Type: Spontaneous
  Country: US (occurrence: US)
  Receive Date: 20151029
  Receipt Date: 20151029
  Transmission Date: 20160304
  Serious: Yes (Other)
  Sender: FDA-Public Use
  Company Number: US-BIOMARINAP-US-2015-107896

PATIENT
  Age: 11 Month
  Sex: Male
  Weight: 11.38 kg

DRUGS (2)
  1. TRI-VI-SOL                         /00262101/ [Concomitant]
     Indication: PRODUCT USED FOR UNKNOWN INDICATION
  2. ALDURAZYME [Suspect]
     Active Substance: LARONIDASE
     Indication: MUCOPOLYSACCHARIDOSIS
     Dosage: .50 MG/KG, QW
     Route: 042
     Dates: start: 20150806

REACTIONS (2)
  - Infection [Unknown]
  - Surgery [Unknown]

NARRATIVE: CASE EVENT DATE: 20150917
